FAERS Safety Report 5814519-X (Version None)
Quarter: 2008Q3

REPORT INFORMATION
  Report Type: 
  Country: None (occurrence: None)
  Receive Date: 20080715
  Receipt Date: 20080701
  Transmission Date: 20090109
  Serious: Yes (Death, Life-Threatening)
  Sender: FDA-Public Use
  Company Number: 2008S1011572

PATIENT
  Age: 86 Year
  Sex: Female

DRUGS (5)
  1. CLARITHROMYCIN [Suspect]
     Indication: LOBAR PNEUMONIA
     Dates: start: 20060225, end: 20060301
  2. DIGOXIN [Concomitant]
  3. FUROSEMIDE [Concomitant]
  4. LANSOPRAZOLE [Concomitant]
  5. SIMVASTATIN [Concomitant]

REACTIONS (3)
  - ACUTE RESPIRATORY DISTRESS SYNDROME [None]
  - PANCREATITIS ACUTE [None]
  - PNEUMONIA [None]
